FAERS Safety Report 7998030-6 (Version None)
Quarter: 2011Q4

REPORT INFORMATION
  Report Type: 
  Country: None (occurrence: None)
  Receive Date: 20111221
  Receipt Date: 20101202
  Transmission Date: 20120403
  Serious: No
  Sender: FDA-Public Use
  Company Number: US-GLAXOSMITHKLINE-A0897411A

PATIENT
  Age: 44 Year
  Sex: Male

DRUGS (13)
  1. LOVAZA [Suspect]
     Indication: BLOOD TRIGLYCERIDES INCREASED
     Dosage: 2G TWICE PER DAY
     Route: 048
     Dates: start: 20101011
  2. MIRALAX [Concomitant]
  3. SODIUM BICARBONATE [Concomitant]
  4. HYDROCODONE [Concomitant]
  5. UNSPECIFIED MEDICATION [Concomitant]
  6. OXYCODONE HCL [Concomitant]
  7. NAMENDA [Concomitant]
  8. NEURONTIN [Concomitant]
  9. NORTRIPTYLINE HCL [Concomitant]
  10. FLEXERIL [Concomitant]
  11. CELEBREX [Concomitant]
  12. CLOMIPHENE CITRATE [Concomitant]
     Dates: start: 20101101
  13. OMEPRAZOLE [Concomitant]

REACTIONS (1)
  - BLOOD TRIGLYCERIDES INCREASED [None]
